FAERS Safety Report 10997829 (Version 1)
Quarter: 2015Q2

REPORT INFORMATION
  Report Type: Spontaneous
  Country: US (occurrence: US)
  Receive Date: 20150408
  Receipt Date: 20150408
  Transmission Date: 20150821
  Serious: No
  Sender: FDA-Public Use
  Company Number: US-BANPHARM-20143141

PATIENT
  Sex: Female

DRUGS (1)
  1. NAPROXEN SODIUM 220 MG [Suspect]
     Active Substance: NAPROXEN SODIUM
     Indication: TOOTHACHE
     Dosage: 440 MG,
     Route: 048
     Dates: start: 20141007, end: 20141007

REACTIONS (1)
  - Drug ineffective [Unknown]

NARRATIVE: CASE EVENT DATE: 20141007
